FAERS Safety Report 8125972-3 (Version None)
Quarter: 2012Q1

REPORT INFORMATION
  Report Type: 
  Country: None (occurrence: None)
  Receive Date: 20120209
  Receipt Date: 20120131
  Transmission Date: 20120608
  Serious: Yes (Hospitalization, Other)
  Sender: FDA-Public Use
  Company Number: US-ALLERGAN-1200571US

PATIENT
  Age: 68 Year
  Sex: Female
  Weight: 50 kg

DRUGS (7)
  1. GLUCOSAMINE + CHONDROITIN WITH MSM [Concomitant]
     Indication: OSTEOARTHRITIS
     Dosage: 1 DF, QD
     Route: 048
  2. CALCIUM [Concomitant]
     Dosage: 1 DF, QD
     Route: 048
  3. REFRESH P.M. [Concomitant]
     Dosage: UNK
  4. MULTI-VITAMIN [Concomitant]
     Dosage: 1 DF, QD
     Route: 048
  5. RESTASIS [Suspect]
     Indication: DRY EYE
     Dosage: 2 GTT, BID
     Route: 047
     Dates: start: 20111023, end: 20111031
  6. GENTEAL [Concomitant]
     Dosage: UNK
  7. GENTEAL [Concomitant]
     Dosage: UNK

REACTIONS (7)
  - THROMBOSIS [None]
  - DYSPNOEA [None]
  - BUNDLE BRANCH BLOCK LEFT [None]
  - PULMONARY THROMBOSIS [None]
  - CHEST DISCOMFORT [None]
  - PAIN IN EXTREMITY [None]
  - BACTERIAL INFECTION [None]
